FAERS Safety Report 9162359 (Version 1)
Quarter: 2013Q1

REPORT INFORMATION
  Report Type: Spontaneous
  Country: US (occurrence: US)
  Receive Date: 20130314
  Receipt Date: 20130314
  Transmission Date: 20140127
  Serious: No
  Sender: FDA-Public Use
  Company Number: US-PFIZER INC-2013082132

PATIENT
  Age: 62 Year
  Sex: Female
  Weight: 67.12 kg

DRUGS (14)
  1. TOLTERODINE TARTRATE [Suspect]
     Indication: IRRITABLE BOWEL SYNDROME
     Dosage: UNK
     Dates: end: 201204
  2. TOLTERODINE TARTRATE [Suspect]
     Indication: BLADDER IRRITATION
  3. TOVIAZ [Suspect]
     Indication: IRRITABLE BOWEL SYNDROME
     Dosage: 4 MG, 1X/DAY
     Dates: start: 201101
  4. TOVIAZ [Suspect]
     Indication: BLADDER IRRITATION
  5. OMEPRAZOLE [Suspect]
     Indication: GASTROOESOPHAGEAL REFLUX DISEASE
     Dosage: 20 MG, 1X/DAY
     Dates: start: 201204
  6. XANAX [Suspect]
     Indication: ANXIETY
     Dosage: 0.25 MG, AS NEEDED
  7. XALATAN [Suspect]
     Indication: GLAUCOMA
     Dosage: 1 GTT, 1X/DAY
     Route: 047
  8. VITAMIN C [Suspect]
     Indication: PROPHYLAXIS
     Dosage: 500 MG, 2X/DAY
  9. ZYRTEC [Suspect]
     Indication: HYPERSENSITIVITY
     Dosage: 10 MG, 1X/DAY
  10. ALBUTEROL [Suspect]
     Indication: BRONCHITIS CHRONIC
     Dosage: 4 MG, 2X/DAY
  11. DEPAKOTE [Suspect]
     Indication: BIPOLAR DISORDER
     Dosage: 500 MG, 2X/DAY
  12. PERCOCET [Suspect]
     Indication: FIBROMYALGIA
     Dosage: 5/325MG, 2X/DAY
  13. SAVELLA [Suspect]
     Indication: FIBROMYALGIA
     Dosage: 50 MG, 2X/DAY
  14. ZYPREXA [Suspect]
     Dosage: 10 MG, UNK

REACTIONS (3)
  - Hyperaesthesia [Recovering/Resolving]
  - Influenza [Unknown]
  - Drug ineffective [Unknown]
